FAERS Safety Report 8089295-3 (Version None)
Quarter: 2012Q1

REPORT INFORMATION
  Report Type: 
  Country: None (occurrence: None)
  Receive Date: 20120128
  Receipt Date: 20110627
  Transmission Date: 20120608
  Serious: No
  Sender: FDA-Public Use
  Company Number: US-ABBOTT-11P-163-0719496-00

PATIENT
  Age: 75 Year
  Sex: Male

DRUGS (7)
  1. SINGULAIR [Concomitant]
     Indication: HYPERSENSITIVITY
  2. VITAMIN B-12 [Concomitant]
     Indication: CROHN'S DISEASE
     Dosage: IN THE MORNING
  3. PENTASA [Concomitant]
     Indication: CROHN'S DISEASE
     Dosage: 4 TABS FOUR TIMES A DAY
     Route: 048
  4. TAMSULOSIN HCL [Concomitant]
     Indication: PROSTATIC DISORDER
     Dosage: AT BEDTIME
     Route: 048
  5. PROMISE [Concomitant]
     Indication: EYE DISORDER
     Dosage: PILLS
  6. HUMIRA [Suspect]
     Indication: CROHN'S DISEASE
     Dates: start: 20110401
  7. ALAVERT [Concomitant]
     Indication: HYPERSENSITIVITY

REACTIONS (4)
  - INCORRECT DOSE ADMINISTERED [None]
  - INJECTION SITE REACTION [None]
  - DEVICE MALFUNCTION [None]
  - INJECTION SITE PAIN [None]
